FAERS Safety Report 8893990 (Version 1)
Quarter: 2012Q4

REPORT INFORMATION
  Report Type: 
  Country: US (occurrence: US)
  Receive Date: 20121107
  Receipt Date: 20121107
  Transmission Date: 20130627
  Serious: No
  Sender: FDA-Public Use
  Company Number: US-AMGEN-USASP2011061941

PATIENT
  Sex: Female

DRUGS (1)
  1. ENBREL [Suspect]
     Indication: PSORIASIS
     Dosage: 50 mg, qwk
     Dates: start: 20070101

REACTIONS (4)
  - Inappropriate schedule of drug administration [Not Recovered/Not Resolved]
  - Psoriasis [Not Recovered/Not Resolved]
  - Injection site pain [Not Recovered/Not Resolved]
  - Sinusitis [Recovered/Resolved]
